APPROVED DRUG PRODUCT: AFINITOR DISPERZ
Active Ingredient: EVEROLIMUS
Strength: 5MG
Dosage Form/Route: TABLET, FOR SUSPENSION;ORAL
Application: N203985 | Product #003 | TE Code: AB
Applicant: NOVARTIS PHARMACEUTICAL CORP
Approved: Aug 29, 2012 | RLD: Yes | RS: Yes | Type: RX